FAERS Safety Report 6596787-2 (Version None)
Quarter: 2010Q1

REPORT INFORMATION
  Report Type: 
  Country: None (occurrence: None)
  Receive Date: 20100223
  Receipt Date: 20100210
  Transmission Date: 20100710
  Serious: Yes (Other)
  Sender: FDA-Public Use
  Company Number: US-BAYER-201016113GPV

PATIENT
  Age: 71 Year
  Sex: Male
  Weight: 85 kg

DRUGS (24)
  1. ASPIRIN [Suspect]
     Indication: ANTIPLATELET THERAPY
     Dosage: VIA NASOGASTRIC TUBE DURING SURGERY
     Route: 045
  2. ASPIRIN [Suspect]
     Dosage: STOPPED 7 DAYS PRIOR TO SURGERY
  3. ASPIRIN [Suspect]
     Dosage: AS USED: 325 MG
  4. PLAVIX [Suspect]
     Indication: ANTIPLATELET THERAPY
     Dosage: STOPPED 7 DAYS PRIOR TO SURGERY
  5. PLAVIX [Suspect]
     Dosage: AS USED: 75 MG
  6. DOPAMINE HCL [Suspect]
     Indication: SUPPORTIVE CARE
  7. HEPARIN [Suspect]
     Indication: DRUG USE FOR UNKNOWN INDICATION
     Dosage: 500 U/HOUR
  8. ABCIXIMAB [Suspect]
     Indication: DRUG USE FOR UNKNOWN INDICATION
     Dosage: AS USED: 840 ?G/H
  9. ATENOLOL [Concomitant]
     Indication: DRUG USE FOR UNKNOWN INDICATION
  10. AMLODIPINE [Concomitant]
     Indication: DRUG USE FOR UNKNOWN INDICATION
  11. OMEPRAZOLE [Concomitant]
     Indication: DRUG USE FOR UNKNOWN INDICATION
  12. TADALAFIL [Concomitant]
     Indication: DRUG USE FOR UNKNOWN INDICATION
  13. ATORVASTATIN CALCIUM [Concomitant]
     Indication: DRUG USE FOR UNKNOWN INDICATION
  14. TAMSULOSIN [Concomitant]
     Indication: DRUG USE FOR UNKNOWN INDICATION
  15. MIDAZOLAM HCL [Concomitant]
     Indication: INDUCTION OF ANAESTHESIA
  16. FENTANYL-100 [Concomitant]
     Indication: INDUCTION OF ANAESTHESIA
  17. FENTANYL-100 [Concomitant]
     Dosage: INTERMITTENT DOSES
  18. PROPOFOL [Concomitant]
     Indication: INDUCTION OF ANAESTHESIA
  19. SUCCINYLCHOLINE CHLORIDE [Concomitant]
     Indication: INDUCTION OF ANAESTHESIA
  20. DESFLURANE [Concomitant]
     Indication: MAINTENANCE OF ANAESTHESIA
     Dosage: END-TIDAL, 4-7 VOL%
  21. CISATRACURIUM BESYLATE [Concomitant]
     Indication: MAINTENANCE OF ANAESTHESIA
     Dosage: INTERMITTENT DOSES
  22. EPHEDRINE SUL CAP [Concomitant]
     Indication: HEART RATE DECREASED
     Dosage: INTERMITTENT BOLUSES
  23. PHENYLEPHRINE HCL [Concomitant]
     Indication: BLOOD PRESSURE SYSTOLIC DECREASED
     Dosage: DRIPS
  24. NOREPINEPHRINE [Concomitant]
     Indication: BLOOD PRESSURE SYSTOLIC DECREASED
     Dosage: DRIPS

REACTIONS (8)
  - BUNDLE BRANCH BLOCK LEFT [None]
  - CARDIAC ARREST [None]
  - ELECTROCARDIOGRAM ST SEGMENT ABNORMAL [None]
  - HYPOTENSION [None]
  - POST PROCEDURAL HAEMORRHAGE [None]
  - PULMONARY CONGESTION [None]
  - THROMBOSIS IN DEVICE [None]
  - VENTRICULAR FIBRILLATION [None]
